FAERS Safety Report 8776297 (Version 1)
Quarter: 2012Q4

REPORT INFORMATION
  Report Type: 
  Country: US (occurrence: US)
  Receive Date: 20120910
  Receipt Date: 20120910
  Transmission Date: 20130627
  Serious: No
  Sender: FDA-Public Use
  Company Number: US-ALLERGAN-1210178US

PATIENT
  Age: 10 Year
  Sex: Female

DRUGS (1)
  1. BLEPHAMIDE [Suspect]
     Indication: PINKEYE
     Dosage: 2 Gtt to affected eye, q4hr
     Route: 047

REACTIONS (4)
  - Medication residue [Recovered/Resolved]
  - Instillation site pain [Unknown]
  - Instillation site pain [Recovered/Resolved]
  - Liquid product physical issue [Unknown]
